FAERS Safety Report 6272652-5 (Version None)
Quarter: 2009Q3

REPORT INFORMATION
  Report Type: 
  Country: None (occurrence: None)
  Receive Date: 20090715
  Receipt Date: 20090715
  Transmission Date: 20100115
  Serious: Yes (Hospitalization)
  Sender: FDA-Public Use
  Company Number: None

PATIENT
  Age: 17 Year
  Sex: Male
  Weight: 127.0072 kg

DRUGS (1)
  1. TOPIRAMATE [Suspect]
     Indication: CONVULSION
     Dosage: 100MG 2X DAILY PO
     Route: 048
     Dates: start: 20090605, end: 20090707

REACTIONS (2)
  - ILL-DEFINED DISORDER [None]
  - PRODUCT SUBSTITUTION ISSUE [None]
